FAERS Safety Report 19370943 (Version 1)
Quarter: 2021Q2

REPORT INFORMATION
  Report Type: Spontaneous
  Country: GB (occurrence: GB)
  Receive Date: 20210604
  Receipt Date: 20210604
  Transmission Date: 20210717
  Serious: Yes (Other)
  Sender: FDA-Public Use
  Company Number: GB-AMGEN-GBRSP2021084289

PATIENT
  Age: 51 Year
  Sex: Female
  Weight: 50 kg

DRUGS (3)
  1. AMGEVITA [Suspect]
     Active Substance: ADALIMUMAB
     Indication: ILL-DEFINED DISORDER
     Dosage: 40 MILLIGRAM
     Route: 051
     Dates: start: 20210521
  2. LYRICA [Concomitant]
     Active Substance: PREGABALIN
     Indication: ILL-DEFINED DISORDER
  3. CELEBREX [Concomitant]
     Active Substance: CELECOXIB
     Indication: ILL-DEFINED DISORDER
     Dosage: UNK

REACTIONS (1)
  - Adverse drug reaction [Not Recovered/Not Resolved]

NARRATIVE: CASE EVENT DATE: 20210524
